FAERS Safety Report 5921553-8 (Version None)
Quarter: 2008Q3

REPORT INFORMATION
  Report Type: 
  Country: None (occurrence: None)
  Receive Date: 20080909
  Receipt Date: 20080305
  Transmission Date: 20090109
  Serious: Yes (Death, Hospitalization)
  Sender: FDA-Public Use
  Company Number: 163-20785-07121318

PATIENT
  Age: 72 Year
  Sex: Male

DRUGS (3)
  1. THALOMID [Suspect]
     Indication: MULTIPLE MYELOMA
     Dosage: 200 MG, 1 IN 1 D, ORAL
     Route: 048
     Dates: start: 20071112, end: 20071101
  2. MELPHALAN (MELPHALAN) [Suspect]
     Indication: MULTIPLE MYELOMA
  3. PREDNISONE TAB [Suspect]
     Indication: MULTIPLE MYELOMA

REACTIONS (5)
  - PANCYTOPENIA [None]
  - PNEUMONIA [None]
  - RENAL FAILURE [None]
  - RESPIRATORY FAILURE [None]
  - SEPTIC SHOCK [None]
